FAERS Safety Report 5613934-7 (Version None)
Quarter: 2008Q1

REPORT INFORMATION
  Report Type: 
  Country: None (occurrence: None)
  Receive Date: 20080130
  Receipt Date: 20080117
  Transmission Date: 20080703
  Serious: Yes (Hospitalization)
  Sender: FDA-Public Use
  Company Number: FABR-1000013

PATIENT
  Sex: Female

DRUGS (11)
  1. FABRAZYME [Suspect]
     Indication: FABRY'S DISEASE
     Dosage: 80 MG, Q2W, INTRAVENOUS
     Route: 042
     Dates: start: 20070406
  2. ALLEGRA [Suspect]
     Indication: PREMEDICATION
  3. ACYCLOVIR [Concomitant]
  4. ZOLOFT [Concomitant]
  5. NIFEDICAL (NIFEDIPINE) [Concomitant]
  6. PRINZIDE (LISINOPRIL DIHYDRATE) [Concomitant]
  7. DITROPAN [Concomitant]
  8. IBUPROFEN [Concomitant]
  9. MOTRIN [Concomitant]
  10. ASPIRIN [Concomitant]
  11. PEPCID (FAMOTIDINE, MAGNESIUM HYDROXIDE) [Concomitant]

REACTIONS (7)
  - CHEST PAIN [None]
  - GASTROOESOPHAGEAL REFLUX DISEASE [None]
  - HEPATOMEGALY [None]
  - LEFT VENTRICULAR HYPERTROPHY [None]
  - LIPASE INCREASED [None]
  - NAUSEA [None]
  - VOMITING [None]
